FAERS Safety Report 24795387 (Version 1)
Quarter: 2024Q4

REPORT INFORMATION
  Report Type: Spontaneous
  Country: CN (occurrence: CN)
  Receive Date: 20241231
  Receipt Date: 20241231
  Transmission Date: 20250115
  Serious: Yes (Hospitalization)
  Sender: MYLAN
  Company Number: CN-MYLANLABS-2024M1116649

PATIENT
  Age: 54 Year
  Sex: Female
  Weight: 55 kg

DRUGS (5)
  1. LYRICA [Suspect]
     Active Substance: PREGABALIN
     Indication: Symptomatic treatment
     Dosage: 75 MILLIGRAM, BID
     Route: 048
     Dates: start: 20191008, end: 20191017
  2. INOSINE [Concomitant]
     Active Substance: INOSINE
     Dosage: UNK
     Route: 065
  3. VITAMIN B1 [Concomitant]
     Active Substance: THIAMINE HYDROCHLORIDE
     Dosage: UNK
     Route: 065
  4. ALPROSTADIL [Concomitant]
     Active Substance: ALPROSTADIL
     Dosage: UNK
     Route: 065
  5. TRIAMCINOLONE [Concomitant]
     Active Substance: TRIAMCINOLONE
     Dosage: 8 MILLIGRAM, TID
     Route: 065
     Dates: start: 20191010, end: 20191016

REACTIONS (1)
  - Hepatic function abnormal [Unknown]

NARRATIVE: CASE EVENT DATE: 20191014
